FAERS Safety Report 6979634-6 (Version None)
Quarter: 2010Q3

REPORT INFORMATION
  Report Type: 
  Country: None (occurrence: None)
  Receive Date: 20100910
  Receipt Date: 20100910
  Transmission Date: 20110219
  Serious: Yes (Other)
  Sender: FDA-Public Use
  Company Number: None

PATIENT
  Age: 84 Year
  Sex: Female
  Weight: 44.5 kg

DRUGS (4)
  1. ZOSYN [Suspect]
     Indication: DEVICE RELATED INFECTION
     Dosage: 2.25G, 3.375 G Q 6 HRS. IV
     Route: 042
     Dates: start: 20100822, end: 20100828
  2. ZOSYN [Suspect]
     Indication: SEPSIS
     Dosage: 2.25G, 3.375 G Q 6 HRS. IV
     Route: 042
     Dates: start: 20100822, end: 20100828
  3. ZOSYN [Suspect]
     Indication: DEVICE RELATED INFECTION
     Dosage: 2.25G, 3.375 G Q 6 HRS. IV
     Route: 042
     Dates: start: 20100906, end: 20100907
  4. ZOSYN [Suspect]
     Indication: SEPSIS
     Dosage: 2.25G, 3.375 G Q 6 HRS. IV
     Route: 042
     Dates: start: 20100906, end: 20100907

REACTIONS (1)
  - THROMBOCYTOPENIA [None]
